FAERS Safety Report 8589809-0 (Version None)
Quarter: 2012Q3

REPORT INFORMATION
  Report Type: 
  Country: None (occurrence: None)
  Receive Date: 20120813
  Receipt Date: 20120806
  Transmission Date: 20120928
  Serious: Yes (Hospitalization)
  Sender: FDA-Public Use
  Company Number: FR-ROCHE-1097983

PATIENT
  Sex: Male

DRUGS (4)
  1. VALIUM [Suspect]
     Indication: DEPRESSION
     Route: 048
     Dates: end: 20120712
  2. VALIUM [Suspect]
     Dosage: 0.750 MG/L
     Dates: start: 20120714
  3. PAROXETINE HCL [Concomitant]
  4. VALIUM [Suspect]
     Dosage: 0.420 MG/L
     Dates: start: 20120717

REACTIONS (1)
  - COMA [None]
